FAERS Safety Report 8258273-3 (Version None)
Quarter: 2012Q2

REPORT INFORMATION
  Report Type: 
  Country: None (occurrence: None)
  Receive Date: 20120404
  Receipt Date: 20120321
  Transmission Date: 20120825
  Serious: Yes (Hospitalization, Other)
  Sender: FDA-Public Use
  Company Number: US-MYLANLABS-2012S1006866

PATIENT
  Sex: Male

DRUGS (33)
  1. DIGOXIN [Suspect]
     Route: 048
     Dates: start: 20041007, end: 20080721
  2. GLYBURIDE [Concomitant]
  3. KEFLEX [Concomitant]
  4. LORTAB [Concomitant]
  5. ZAROXOLYN [Concomitant]
  6. ADVAIR DISKUS 100/50 [Concomitant]
  7. XOPENEX [Concomitant]
  8. SPIRONOLACTONE [Concomitant]
  9. METFORMIN HCL [Concomitant]
  10. AVANDIA [Concomitant]
  11. DIABETA [Concomitant]
  12. LANTUS [Concomitant]
  13. POTASSIUM CHLORIDE [Concomitant]
  14. AMIODARONE HCL [Concomitant]
  15. SPIRIVA [Concomitant]
  16. LISINOPRIL [Concomitant]
  17. COUMADIN [Concomitant]
  18. SOTALOL HCL [Concomitant]
  19. BACTROBAN [Concomitant]
  20. ASPIRIN [Concomitant]
  21. HYDROCODONE BITARTRATE [Concomitant]
  22. VITAMIN B-12 [Concomitant]
     Route: 058
  23. LASIX [Concomitant]
  24. ALBUTEROL [Concomitant]
  25. FUROSEMIDE [Concomitant]
  26. WARFARIN SODIUM [Concomitant]
  27. HYDROGEL [Concomitant]
  28. GLUCOPHAGE [Concomitant]
  29. LOTENSIN [Concomitant]
  30. ACTOS [Concomitant]
  31. KLOR-CON [Concomitant]
  32. HYDROGEL [Concomitant]
  33. CIALIS [Concomitant]

REACTIONS (63)
  - DIZZINESS [None]
  - DIABETIC RETINOPATHY [None]
  - ERYTHEMA [None]
  - SINUS CONGESTION [None]
  - LABORATORY TEST ABNORMAL [None]
  - DYSPNOEA [None]
  - VENTRICULAR TACHYCARDIA [None]
  - CONDITION AGGRAVATED [None]
  - PYREXIA [None]
  - IMPAIRED HEALING [None]
  - DISCOMFORT [None]
  - ORTHOPNOEA [None]
  - BRADYCARDIA [None]
  - RENAL FAILURE CHRONIC [None]
  - PRESYNCOPE [None]
  - OROPHARYNGEAL PAIN [None]
  - ARTERIOSCLEROSIS [None]
  - EAR PAIN [None]
  - DIABETES MELLITUS [None]
  - SYNCOPE [None]
  - FALL [None]
  - PERIPHERAL VASCULAR DISORDER [None]
  - EYE DISORDER [None]
  - HYPOAESTHESIA [None]
  - ARTHRALGIA [None]
  - CONSTIPATION [None]
  - PALPITATIONS [None]
  - HEART RATE IRREGULAR [None]
  - FLANK PAIN [None]
  - ATRIAL FLUTTER [None]
  - RETINAL DETACHMENT [None]
  - WOUND [None]
  - NEUROPATHY PERIPHERAL [None]
  - INSOMNIA [None]
  - LOCALISED INFECTION [None]
  - HYPERKERATOSIS [None]
  - DECREASED APPETITE [None]
  - CELLULITIS [None]
  - VOMITING [None]
  - DIARRHOEA [None]
  - GASTROENTERITIS [None]
  - INTRAOCULAR LENS IMPLANT [None]
  - OEDEMA PERIPHERAL [None]
  - NASOPHARYNGITIS [None]
  - NUCLEAR MAGNETIC RESONANCE IMAGING ABNORMAL [None]
  - ASTHENIA [None]
  - ATRIAL FIBRILLATION [None]
  - NAUSEA [None]
  - HEADACHE [None]
  - PAIN IN EXTREMITY [None]
  - OSTEOARTHRITIS [None]
  - WHEEZING [None]
  - RENAL COLIC [None]
  - X-RAY ABNORMAL [None]
  - CARDIAC FAILURE CONGESTIVE [None]
  - HYPERGLYCAEMIA [None]
  - INFLUENZA [None]
  - CORONARY ARTERY DISEASE [None]
  - SKIN ULCER [None]
  - HYPERTENSION [None]
  - MYALGIA [None]
  - HYPERLIPIDAEMIA [None]
  - ECHOCARDIOGRAM ABNORMAL [None]
